FAERS Safety Report 7599985-4 (Version None)
Quarter: 2011Q3

REPORT INFORMATION
  Report Type: 
  Country: None (occurrence: None)
  Receive Date: 20110711
  Receipt Date: 20110706
  Transmission Date: 20111222
  Serious: No
  Sender: FDA-Public Use
  Company Number: US-PFIZER INC-2011151920

PATIENT
  Sex: Male
  Weight: 100 kg

DRUGS (6)
  1. PLAVIX [Concomitant]
     Dosage: 75MG DAILY
  2. MULTI-VITAMINS [Concomitant]
     Dosage: UNK
  3. PRAVACHOL [Concomitant]
     Indication: BLOOD CHOLESTEROL ABNORMAL
     Dosage: 80 MG, DAILY
  4. CHANTIX [Suspect]
     Indication: SMOKING CESSATION THERAPY
     Dosage: 0.5MG DAILY
     Route: 048
     Dates: start: 20110601
  5. COZAAR [Concomitant]
     Indication: HYPERTENSION
     Dosage: 50MG DAILY
  6. ASPIRIN [Concomitant]
     Indication: PAIN
     Dosage: 325 MG, 2X/DAY

REACTIONS (1)
  - FEELING ABNORMAL [None]
